FAERS Safety Report 8314739-9 (Version None)
Quarter: 2012Q2

REPORT INFORMATION
  Report Type: 
  Country: None (occurrence: None)
  Receive Date: 20120426
  Receipt Date: 20120420
  Transmission Date: 20120825
  Serious: Yes (Death)
  Sender: FDA-Public Use
  Company Number: US-INCYTE CORPORATION-2012IN000646

PATIENT
  Sex: Male

DRUGS (14)
  1. SANCTURA [Concomitant]
     Dosage: 60 MG, UNK
  2. L-CARNITINE [Concomitant]
     Dosage: 250 MG, UNK
  3. PRILOSEC [Concomitant]
     Dosage: 40 MG, UNK
  4. VITAMIN B12 [Concomitant]
     Dosage: 100 MCG, UNK
  5. VITAMIN B6 [Concomitant]
     Dosage: 250 MG, UNK
  6. JAKAFI [Suspect]
     Dosage: 20 MG, BID
     Route: 048
  7. ARIXTRA [Concomitant]
     Dosage: 7.5 MG, UNK
  8. AMITRIPTYLINE HCL [Concomitant]
     Dosage: 150 MG, UNK
  9. TYLENOL ARTHRITIS [Concomitant]
     Dosage: 650 MG, UNK
  10. HYDROXYUREA [Concomitant]
     Dosage: 500 MG, UNK
  11. MEGACE [Concomitant]
  12. FLOMAX [Concomitant]
     Dosage: 0.4 MG, UNK
  13. FOLIC ACID [Concomitant]
     Dosage: 20 MG, UNK
  14. ALPHA LIPOIC ACID [Concomitant]
     Dosage: 50 MG, UNK

REACTIONS (1)
  - DEATH [None]
